FAERS Safety Report 8017806-2 (Version None)
Quarter: 2012Q1

REPORT INFORMATION
  Report Type: 
  Country: None (occurrence: None)
  Receive Date: 20120103
  Receipt Date: 20111228
  Transmission Date: 20120608
  Serious: Yes (Other)
  Sender: FDA-Public Use
  Company Number: US-PFIZER INC-2011315345

PATIENT
  Sex: Female
  Weight: 49.9 kg

DRUGS (2)
  1. EFFEXOR XR [Suspect]
     Indication: DEPRESSION
     Dosage: UNK
     Dates: start: 20101001
  2. PROZAC [Suspect]
     Indication: DEPRESSION
     Dosage: UNK

REACTIONS (2)
  - SUICIDE ATTEMPT [None]
  - DRUG INEFFECTIVE [None]
